FAERS Safety Report 7593548-2 (Version None)
Quarter: 2011Q2

REPORT INFORMATION
  Report Type: 
  Country: None (occurrence: None)
  Receive Date: 20110628
  Receipt Date: 20110621
  Transmission Date: 20111010
  Serious: Yes (Life-Threatening, Hospitalization)
  Sender: FDA-Public Use
  Company Number: 957540

PATIENT
  Age: 68 Year
  Sex: Female

DRUGS (2)
  1. OXALIPLATIN [Suspect]
     Indication: COLORECTAL CANCER
     Dosage: 130 MG/KG MILLIGRAM(S)/KILOGRAM (3 WEEK)
     Route: 042
     Dates: start: 20110204
  2. XELODA [Suspect]
     Indication: COLORECTAL CANCER
     Dosage: 1 G GRAM(S), 2 WEEK, ORAL
     Route: 048
     Dates: start: 20110204

REACTIONS (4)
  - DEHYDRATION [None]
  - DIARRHOEA [None]
  - ORGAN FAILURE [None]
  - COLITIS [None]
